FAERS Safety Report 13297271 (Version 1)
Quarter: 2017Q1

REPORT INFORMATION
  Report Type: Spontaneous
  Country: US (occurrence: US)
  Receive Date: 20170304
  Receipt Date: 20170304
  Transmission Date: 20170428
  Serious: Yes (Disabling, Other)
  Sender: FDA-Public Use
  Company Number: None

PATIENT
  Age: 70 Year
  Sex: Female
  Weight: 58.5 kg

DRUGS (8)
  1. BABY ASPIRIN [Concomitant]
     Active Substance: ASPIRIN
  2. MULTI VITAMIN [Concomitant]
     Active Substance: VITAMINS
  3. CITRIZINE [Concomitant]
  4. XANAX [Concomitant]
     Active Substance: ALPRAZOLAM
  5. METAPROLOL [Concomitant]
     Active Substance: METOPROLOL
  6. CIPRO [Suspect]
     Active Substance: CIPROFLOXACIN HYDROCHLORIDE
     Indication: UPPER RESPIRATORY TRACT INFECTION
     Dosage: ?          QUANTITY:1 TABLET(S);?
     Route: 048
     Dates: start: 20160315, end: 20160325
  7. OMEPROZOLE [Concomitant]
     Active Substance: OMEPRAZOLE
  8. PROBIOTIC [Concomitant]
     Active Substance: PROBIOTICS NOS

REACTIONS (5)
  - Motor dysfunction [None]
  - Tinnitus [None]
  - Deafness [None]
  - Ear discomfort [None]
  - Fatigue [None]

NARRATIVE: CASE EVENT DATE: 20160315
